FAERS Safety Report 5487461-4 (Version None)
Quarter: 2007Q4

REPORT INFORMATION
  Report Type: 
  Country: None (occurrence: None)
  Receive Date: 20071016
  Receipt Date: 20071004
  Transmission Date: 20080405
  Serious: Yes (Disabling)
  Sender: FDA-Public Use
  Company Number: PT-PFIZER INC-2007067346

PATIENT
  Age: 85 Year
  Sex: Female
  Weight: 50 kg

DRUGS (3)
  1. LOPID [Suspect]
     Indication: HYPERCHOLESTEROLAEMIA
     Dosage: DAILY DOSE:600MG-TEXT:600 MG DAILY
     Route: 048
     Dates: start: 20070618, end: 20070618
  2. PRAVASTATIN [Suspect]
     Indication: HYPERCHOLESTEROLAEMIA
  3. LORAZEPAM [Concomitant]
     Route: 048

REACTIONS (2)
  - MOVEMENT DISORDER [None]
  - MYALGIA [None]
